FAERS Safety Report 18979548 (Version 1)
Quarter: 2021Q1

REPORT INFORMATION
  Report Type: Spontaneous
  Country: US (occurrence: US)
  Receive Date: 20210308
  Receipt Date: 20210308
  Transmission Date: 20210420
  Serious: No
  Sender: FDA-Public Use
  Company Number: US-GLAXOSMITHKLINE-USCH2021010813

PATIENT

DRUGS (1)
  1. ALLI [Suspect]
     Active Substance: ORLISTAT
     Indication: WEIGHT DECREASED

REACTIONS (8)
  - Abnormal faeces [Unknown]
  - Gastrointestinal pain [Unknown]
  - Diarrhoea [Unknown]
  - Faeces discoloured [Unknown]
  - Constipation [Unknown]
  - Abdominal pain upper [Unknown]
  - Drug ineffective [Unknown]
  - Steatorrhoea [Unknown]
